FAERS Safety Report 25434821 (Version 1)
Quarter: 2025Q2

REPORT INFORMATION
  Report Type: Report from Study
  Country: IL (occurrence: IL)
  Receive Date: 20250613
  Receipt Date: 20250613
  Transmission Date: 20250716
  Serious: Yes (Other)
  Sender: TEVA
  Company Number: IL-TEVA-VS-3337236

PATIENT
  Age: 52 Year
  Sex: Male

DRUGS (4)
  1. AUSTEDO [Suspect]
     Active Substance: DEUTETRABENAZINE
     Indication: Tardive dyskinesia
     Dosage: TAKING 6 MG IN THE MORNING AND 6 MG IN THE EVENING
     Route: 065
     Dates: start: 20250512, end: 20250518
  2. AUSTEDO [Suspect]
     Active Substance: DEUTETRABENAZINE
     Indication: Tardive dyskinesia
     Dosage: 9 MG IN THE MORNING AND 9 MG IN THE EVENING
     Route: 065
     Dates: start: 20250519, end: 20250525
  3. AUSTEDO [Suspect]
     Active Substance: DEUTETRABENAZINE
     Indication: Tardive dyskinesia
     Dosage: 12 MG IN THE MORNING AND 12 MG AT NIGHT
     Route: 065
     Dates: start: 20250527, end: 2025
  4. PERPHENAN [Concomitant]
     Indication: Product used for unknown indication

REACTIONS (3)
  - Depression [Unknown]
  - Anxiety [Unknown]
  - Obsessive thoughts [Unknown]

NARRATIVE: CASE EVENT DATE: 20250501
